APPROVED DRUG PRODUCT: PRE-SATE
Active Ingredient: CHLORPHENTERMINE HYDROCHLORIDE
Strength: EQ 65MG BASE
Dosage Form/Route: TABLET;ORAL
Application: N014696 | Product #001
Applicant: PARKE DAVIS DIV WARNER LAMBERT CO
Approved: Approved Prior to Jan 1, 1982 | RLD: No | RS: No | Type: DISCN